FAERS Safety Report 13849329 (Version 1)
Quarter: 2017Q3

REPORT INFORMATION
  Report Type: Spontaneous
  Country: US (occurrence: US)
  Receive Date: 20170809
  Receipt Date: 20170809
  Transmission Date: 20171127
  Serious: No
  Sender: FDA-Public Use
  Company Number: None

PATIENT
  Age: 85 Year
  Sex: Female
  Weight: 54.43 kg

DRUGS (7)
  1. CARVEDILOL. [Concomitant]
     Active Substance: CARVEDILOL
  2. PRADAXA [Suspect]
     Active Substance: DABIGATRAN ETEXILATE MESYLATE
     Indication: PERICARDIAL EFFUSION
     Dosage: 2 PILLS DAILY (SAMPLES)  2X DAILY 12:00PM-10:00PM BY MOUTH
     Route: 048
     Dates: start: 20170202
  3. PREDNISONE. [Concomitant]
     Active Substance: PREDNISONE
  4. VEGAN D [Concomitant]
  5. PROTONIX [Concomitant]
     Active Substance: PANTOPRAZOLE SODIUM
  6. TAMBACOR [Concomitant]
  7. ULTRAINFLAM X PLUS 360 [Concomitant]

REACTIONS (1)
  - Gastrooesophageal reflux disease [None]

NARRATIVE: CASE EVENT DATE: 20170216
